APPROVED DRUG PRODUCT: CELECOXIB
Active Ingredient: CELECOXIB
Strength: 200MG
Dosage Form/Route: CAPSULE;ORAL
Application: A207446 | Product #003 | TE Code: AB
Applicant: CIPLA LTD
Approved: Sep 23, 2015 | RLD: No | RS: No | Type: RX